FAERS Safety Report 5005215-X (Version None)
Quarter: 2006Q2

REPORT INFORMATION
  Report Type: 
  Country: None (occurrence: None)
  Receive Date: 20060515
  Receipt Date: 20060501
  Transmission Date: 20061013
  Serious: Yes (Life-Threatening, Hospitalization, Other)
  Sender: FDA-Public Use
  Company Number: 2006058456

PATIENT
  Age: 58 Year
  Sex: Male
  Weight: 68.9467 kg

DRUGS (11)
  1. REVATIO [Suspect]
     Indication: PULMONARY HYPERTENSION
     Dosage: 60 MG (20 MG, 3 IN 1 D)
  2. DIPRIVAN [Suspect]
     Indication: OESOPHAGOGASTRODUODENOSCOPY
     Dates: start: 20060425
  3. EPHEDRINE SUL CAP [Suspect]
     Indication: BRADYCARDIA
     Dates: start: 20060425
  4. SPORANOX [Concomitant]
  5. POTASSIUM (POTASSIUM) [Concomitant]
  6. PREDNISONE TAB [Concomitant]
  7. ADVAIR DISKUS 100/50 [Concomitant]
  8. PHENYTOIN [Concomitant]
  9. NORTRIPTYLINE (NORTRIPTYLINE) [Concomitant]
  10. METOPROLOL SUCCINATE [Concomitant]
  11. PEPCID AC [Concomitant]

REACTIONS (13)
  - AGITATION [None]
  - BLINDNESS CORTICAL [None]
  - BRADYCARDIA [None]
  - CARDIAC ARREST [None]
  - DILATATION ATRIAL [None]
  - DILATATION VENTRICULAR [None]
  - DRUG INTERACTION [None]
  - ELECTROMECHANICAL DISSOCIATION [None]
  - GAZE PALSY [None]
  - HYPOTENSION [None]
  - PROCEDURAL COMPLICATION [None]
  - UNRESPONSIVE TO VERBAL STIMULI [None]
  - VENTRICULAR FIBRILLATION [None]
